FAERS Safety Report 26085794 (Version 1)
Quarter: 2025Q4

REPORT INFORMATION
  Report Type: Spontaneous
  Country: CA (occurrence: CA)
  Receive Date: 20251125
  Receipt Date: 20251125
  Transmission Date: 20260117
  Serious: Yes (Other)
  Sender: CELLTRION
  Company Number: CA-CELLTRION INC.-2025CA042598

PATIENT

DRUGS (2)
  1. INFLECTRA [Suspect]
     Active Substance: INFLIXIMAB-DYYB
     Indication: Product used for unknown indication
     Route: 064
  2. IXIFI [Suspect]
     Active Substance: INFLIXIMAB-QBTX
     Indication: Product used for unknown indication
     Dosage: UNK
     Route: 064
     Dates: start: 20250603

REACTIONS (2)
  - Tachycardia foetal [Unknown]
  - Foetal exposure during pregnancy [Unknown]

NARRATIVE: CASE EVENT DATE: 20250915
